FAERS Safety Report 18933172 (Version 1)
Quarter: 2021Q1

REPORT INFORMATION
  Report Type: Spontaneous
  Country: US (occurrence: US)
  Receive Date: 20210223
  Receipt Date: 20210223
  Transmission Date: 20210420
  Serious: Yes (Life-Threatening, Hospitalization)
  Sender: FDA-Public Use
  Company Number: None

PATIENT
  Age: 54 Year
  Sex: Female
  Weight: 64 kg

DRUGS (5)
  1. COSENTYX [Suspect]
     Active Substance: SECUKINUMAB
     Indication: PSORIATIC ARTHROPATHY
     Dosage: FREQUENCY:  EVERY 4 WEEKS.
     Route: 058
     Dates: start: 20200601, end: 20210101
  2. OMEPRAZOL E [Concomitant]
     Active Substance: OMEPRAZOLE
  3. VENLAFAXINE [Concomitant]
     Active Substance: VENLAFAXINE HYDROCHLORIDE
  4. LEVOTHYROXINE. [Concomitant]
     Active Substance: LEVOTHYROXINE
  5. WELLBUTRIN [Concomitant]
     Active Substance: BUPROPION HYDROCHLORIDE

REACTIONS (8)
  - Dysarthria [None]
  - Hypoaesthesia [None]
  - Leukocytosis [None]
  - Bacterial test positive [None]
  - Aphasia [None]
  - Parvimonas micra infection [None]
  - Brain abscess [None]
  - Streptococcus test positive [None]

NARRATIVE: CASE EVENT DATE: 20210211
